FAERS Safety Report 15667520 (Version 1)
Quarter: 2018Q4

REPORT INFORMATION
  Report Type: Spontaneous
  Country: DE (occurrence: DE)
  Receive Date: 20181128
  Receipt Date: 20181128
  Transmission Date: 20190205
  Serious: Yes (Death, Other)
  Sender: FDA-Public Use
  Company Number: DE-009507513-1811DEU010096

PATIENT
  Age: 70 Year
  Sex: Male

DRUGS (1)
  1. MIRTAZAPINE. [Suspect]
     Active Substance: MIRTAZAPINE
     Indication: PRODUCT USED FOR UNKNOWN INDICATION
     Dosage: 1/2 TABLET EVERY EVENING
     Route: 048
     Dates: start: 20181023, end: 20181024

REACTIONS (3)
  - Intentional overdose [Fatal]
  - Agitation [Unknown]
  - Completed suicide [Fatal]

NARRATIVE: CASE EVENT DATE: 20181024
